FAERS Safety Report 9449609 (Version 1)
Quarter: 2013Q3

REPORT INFORMATION
  Report Type: Spontaneous
  Country: US (occurrence: US)
  Receive Date: 20130809
  Receipt Date: 20130809
  Transmission Date: 20140515
  Serious: No
  Sender: FDA-Public Use
  Company Number: US-PFIZER INC-2013227623

PATIENT
  Age: 65 Year
  Sex: Male

DRUGS (5)
  1. SUTENT [Suspect]
     Dosage: 50 MG DAILY , CYCLIC, (28 DAYS ON 14 OFF)
     Route: 048
  2. ULORIC [Concomitant]
     Dosage: UNK
  3. BENICAR [Concomitant]
     Dosage: UNK
  4. SIMVASTATIN [Concomitant]
     Dosage: UNK
  5. ASPIRIN [Concomitant]
     Dosage: UNK

REACTIONS (1)
  - Gastrointestinal disorder [Unknown]
